FAERS Safety Report 9925438 (Version 1)
Quarter: 2014Q1

REPORT INFORMATION
  Report Type: Spontaneous
  Country: CH (occurrence: CH)
  Receive Date: 20140226
  Receipt Date: 20140226
  Transmission Date: 20141002
  Serious: Yes (Other)
  Sender: FDA-Public Use
  Company Number: CH-AMGEN-CHESP2014012945

PATIENT
  Age: 46 Year
  Sex: Male

DRUGS (2)
  1. ENBREL [Suspect]
     Indication: PSORIATIC ARTHROPATHY
     Dosage: 50 MG, WEEKLY
     Route: 065
     Dates: start: 20041221, end: 20100906
  2. ENBREL [Suspect]
     Dosage: 50 MG, EVERY 10 DAYS
     Route: 065
     Dates: start: 20100906, end: 20131217

REACTIONS (3)
  - Cholesteatoma [Not Recovered/Not Resolved]
  - Viral infection [Not Recovered/Not Resolved]
  - Bacterial infection [Not Recovered/Not Resolved]
